FAERS Safety Report 13945850 (Version 1)
Quarter: 2017Q3

REPORT INFORMATION
  Report Type: Spontaneous
  Country: US (occurrence: US)
  Receive Date: 20170907
  Receipt Date: 20170907
  Transmission Date: 20171128
  Serious: No
  Sender: FDA-Public Use
  Company Number: US-BAYER-2017-169003

PATIENT
  Age: 15 Month
  Sex: Female
  Weight: 10 kg

DRUGS (2)
  1. CLARITIN [Suspect]
     Active Substance: LORATADINE
     Indication: HYPERSENSITIVITY
     Dosage: 2.5 ML, QD
     Route: 048
     Dates: start: 20170830, end: 20170831
  2. CLARITIN [Suspect]
     Active Substance: LORATADINE
     Indication: NASOPHARYNGITIS

REACTIONS (5)
  - Urticaria [Not Recovered/Not Resolved]
  - Skin disorder [Not Recovered/Not Resolved]
  - Inappropriate prescribing [Unknown]
  - Rash generalised [Not Recovered/Not Resolved]
  - Underdose [Unknown]

NARRATIVE: CASE EVENT DATE: 20170830
